FAERS Safety Report 7732317-7 (Version None)
Quarter: 2011Q3

REPORT INFORMATION
  Report Type: 
  Country: None (occurrence: None)
  Receive Date: 20110906
  Receipt Date: 20110822
  Transmission Date: 20111222
  Serious: Yes (Hospitalization, Other)
  Sender: FDA-Public Use
  Company Number: US-WATSON-2011-13754

PATIENT
  Age: 43 Year
  Sex: Male

DRUGS (1)
  1. DIPHENHYDRAMINE HCL [Suspect]
     Indication: PRODUCT USED FOR UNKNOWN INDICATION
     Dosage: 100 MG, DAILY (5-10 TABS AT A TIME)

REACTIONS (6)
  - OVERDOSE [None]
  - EUPHORIC MOOD [None]
  - SOMNOLENCE [None]
  - DRUG WITHDRAWAL SYNDROME [None]
  - DRUG DEPENDENCE [None]
  - ELECTROCARDIOGRAM QT PROLONGED [None]
